FAERS Safety Report 24570859 (Version 1)
Quarter: 2024Q4

REPORT INFORMATION
  Report Type: Spontaneous
  Country: US (occurrence: US)
  Receive Date: 20241101
  Receipt Date: 20241101
  Transmission Date: 20250115
  Serious: Yes (Other)
  Sender: GLENMARK
  Company Number: US-GLENMARK PHARMACEUTICALS-2024GMK095071

PATIENT

DRUGS (1)
  1. MUPIROCIN [Suspect]
     Active Substance: MUPIROCIN
     Indication: Product used for unknown indication
     Dosage: UNK, TID
     Route: 065
     Dates: start: 20240608, end: 20240622

REACTIONS (5)
  - Localised infection [Recovering/Resolving]
  - Loss of personal independence in daily activities [Unknown]
  - Emotional distress [Unknown]
  - Pain [Unknown]
  - Recalled product administered [Unknown]

NARRATIVE: CASE EVENT DATE: 20240608
